FAERS Safety Report 26023488 (Version 1)
Quarter: 2025Q4

REPORT INFORMATION
  Report Type: Report from Study
  Country: US (occurrence: US)
  Receive Date: 20251111
  Receipt Date: 20251111
  Transmission Date: 20260118
  Serious: Yes (Disabling, Other)
  Sender: ABBVIE
  Company Number: US-ABBVIE-6536970

PATIENT
  Sex: Female

DRUGS (1)
  1. RINVOQ [Suspect]
     Active Substance: UPADACITINIB
     Indication: Product used for unknown indication
     Route: 048
     Dates: start: 20240401

REACTIONS (9)
  - Disability [Unknown]
  - Loss of personal independence in daily activities [Unknown]
  - Pain in extremity [Unknown]
  - Grip strength decreased [Unknown]
  - Crying [Unknown]
  - Incontinence [Unknown]
  - Colorectostomy [Unknown]
  - Psoriatic arthropathy [Not Recovered/Not Resolved]
  - Colitis ulcerative [Not Recovered/Not Resolved]
